FAERS Safety Report 7239123 (Version 3)
Quarter: 2014Q1

REPORT INFORMATION
  Report Type: Spontaneous
  Country: US (occurrence: US)
  Receive Date: 20100107
  Receipt Date: 20140203
  Transmission Date: 20141002
  Serious: Yes (Hospitalization, Other)
  Sender: FDA-Public Use
  Company Number: US-JNJFOC-20100100440

PATIENT
  Sex: Male
  Weight: 72.58 kg

DRUGS (2)
  1. DURAGESIC [Suspect]
     Indication: PAIN
     Route: 062
     Dates: start: 2004, end: 200912
  2. DURAGESIC [Suspect]
     Indication: PAIN
     Route: 062
     Dates: start: 200912

REACTIONS (6)
  - Intervertebral disc degeneration [Recovered/Resolved]
  - Product quality issue [Unknown]
  - Drug administered at inappropriate site [Unknown]
  - Drug effect decreased [Not Recovered/Not Resolved]
  - Wrong technique in drug usage process [Not Recovered/Not Resolved]
  - Product quality issue [Unknown]
